FAERS Safety Report 19044415 (Version 1)
Quarter: 2021Q1

REPORT INFORMATION
  Report Type: Spontaneous
  Country: US (occurrence: US)
  Receive Date: 20210323
  Receipt Date: 20210323
  Transmission Date: 20210420
  Serious: Yes (Other)
  Sender: FDA-Public Use
  Company Number: None

PATIENT
  Age: 48 Year
  Sex: Female
  Weight: 47.25 kg

DRUGS (2)
  1. ASPIRIN. [Concomitant]
     Active Substance: ASPIRIN
  2. HYALURONIDASE [Suspect]
     Active Substance: HYALURONIDASE
     Indication: NODULE
     Dosage: ?          OTHER ROUTE:INJECTED INTO THE LOWER LIP?
     Dates: start: 20191221, end: 20191221

REACTIONS (12)
  - Wrong technique in product usage process [None]
  - Drug monitoring procedure not performed [None]
  - Soft tissue injury [None]
  - Nerve injury [None]
  - Dysarthria [None]
  - Skin indentation [None]
  - Dyskinesia [None]
  - Incorrect route of product administration [None]
  - Iatrogenic injury [None]
  - Mouth injury [None]
  - Procedural complication [None]
  - Lip erosion [None]

NARRATIVE: CASE EVENT DATE: 20191221
